FAERS Safety Report 21739659 (Version 1)
Quarter: 2022Q4

REPORT INFORMATION
  Report Type: Spontaneous
  Country: GB (occurrence: GB)
  Receive Date: 20221216
  Receipt Date: 20221216
  Transmission Date: 20230113
  Serious: Yes (Other)
  Sender: FDA-Public Use
  Company Number: GB-MHRA-TPP1243588C5928747YC1669389547544

PATIENT
  Age: 53 Year
  Sex: Female
  Weight: 64 kg

DRUGS (4)
  1. ARIPIPRAZOLE [Suspect]
     Active Substance: ARIPIPRAZOLE
     Indication: Product used for unknown indication
     Dosage: 5 MILLIGRAM, ONCE A DAY (TAKE ONE TABLET ONCE DAILY IN THE MORNING)
     Route: 065
     Dates: start: 20220111
  2. ESTRADIOL [Concomitant]
     Active Substance: ESTRADIOL
     Indication: Product used for unknown indication
     Dosage: 1 DOSAGE FORM, ONCE A DAY (APPLY ONCE DAILY)
     Route: 065
     Dates: start: 20220912
  3. PROGESTERONE [Concomitant]
     Active Substance: PROGESTERONE
     Indication: Product used for unknown indication
     Dosage: 1 DOSAGE FORM, ONCE A DAY (AT BEDTIME. TAKE FO)
     Route: 065
     Dates: start: 20220912
  4. QUETIAPINE [Concomitant]
     Active Substance: QUETIAPINE
     Indication: Product used for unknown indication
     Dosage: 12.5 MILLIGRAM, ONCE A DAY (AT NIGHT)
     Route: 065
     Dates: start: 20220209

REACTIONS (2)
  - Binge eating [Recovering/Resolving]
  - Sedation complication [Recovering/Resolving]

NARRATIVE: CASE EVENT DATE: 20221122
